FAERS Safety Report 7205469-5 (Version None)
Quarter: 2010Q4

REPORT INFORMATION
  Report Type: 
  Country: None (occurrence: None)
  Receive Date: 20101231
  Receipt Date: 20101228
  Transmission Date: 20110411
  Serious: Yes (Death)
  Sender: FDA-Public Use
  Company Number: PHEH2007US16453

PATIENT
  Sex: Male
  Weight: 68 kg

DRUGS (1)
  1. EXJADE [Suspect]
     Indication: ANAEMIA HAEMOLYTIC AUTOIMMUNE
     Dosage: 500 MG, DAILY
     Dates: start: 20070314, end: 20070827

REACTIONS (3)
  - ARTHRALGIA [None]
  - DEATH [None]
  - DIARRHOEA [None]
